FAERS Safety Report 6097795-0 (Version None)
Quarter: 2009Q1

REPORT INFORMATION
  Report Type: 
  Country: None (occurrence: None)
  Receive Date: 20090223
  Receipt Date: 20081008
  Transmission Date: 20090719
  Serious: Yes (Other)
  Sender: FDA-Public Use
  Company Number: WAES 0810USA01584

PATIENT

DRUGS (1)
  1. ZOCOR [Suspect]

REACTIONS (1)
  - RHABDOMYOLYSIS [None]
